FAERS Safety Report 18406156 (Version 1)
Quarter: 2020Q4

REPORT INFORMATION
  Report Type: Spontaneous
  Country: US (occurrence: US)
  Receive Date: 20201020
  Receipt Date: 20201020
  Transmission Date: 20210114
  Serious: Yes (Hospitalization, Other)
  Sender: FDA-Public Use
  Company Number: US-SA-2020SA292568

PATIENT

DRUGS (4)
  1. ELIQUIS [Suspect]
     Active Substance: APIXABAN
     Indication: THROMBOSIS
     Dosage: 2 DF, BID
     Route: 048
     Dates: start: 2020, end: 2020
  2. ELIQUIS [Suspect]
     Active Substance: APIXABAN
     Indication: PULMONARY THROMBOSIS
     Dosage: 1 DF, BID
     Route: 048
     Dates: start: 2020, end: 20201012
  3. PLAVIX [Suspect]
     Active Substance: CLOPIDOGREL BISULFATE
     Indication: CEREBROVASCULAR ACCIDENT
     Dosage: 75 MG, QD
     Route: 048
     Dates: start: 2017
  4. PLAVIX [Suspect]
     Active Substance: CLOPIDOGREL BISULFATE
     Indication: MYOCARDIAL INFARCTION

REACTIONS (6)
  - Rash pruritic [Unknown]
  - Pulmonary thrombosis [Unknown]
  - Rash [Unknown]
  - Off label use [Unknown]
  - Thrombosis [Unknown]
  - Urticaria [Unknown]

NARRATIVE: CASE EVENT DATE: 2020
